FAERS Safety Report 5701958-0 (Version None)
Quarter: 2008Q2

REPORT INFORMATION
  Report Type: 
  Country: None (occurrence: None)
  Receive Date: 20080411
  Receipt Date: 20070327
  Transmission Date: 20081010
  Serious: Yes (Hospitalization)
  Sender: FDA-Public Use
  Company Number: US-ABBOTT-06P-163-0333028-00

PATIENT
  Sex: Female
  Weight: 65.376 kg

DRUGS (7)
  1. DEPAKOTE [Suspect]
     Indication: CONVULSION PROPHYLAXIS
     Route: 048
     Dates: end: 20041201
  2. DEPAKOTE [Suspect]
     Indication: AFFECTIVE DISORDER
     Route: 048
     Dates: start: 20041201, end: 20050426
  3. DEPAKOTE [Suspect]
     Route: 048
     Dates: start: 20050426
  4. QUETIAPINE FUMARATE [Concomitant]
     Indication: DRUG USE FOR UNKNOWN INDICATION
  5. LORAZEPAM [Concomitant]
     Indication: DRUG USE FOR UNKNOWN INDICATION
  6. CALCIUM [Concomitant]
     Indication: DRUG USE FOR UNKNOWN INDICATION
  7. ZONEGRAN [Concomitant]
     Indication: DRUG USE FOR UNKNOWN INDICATION

REACTIONS (3)
  - AMMONIA INCREASED [None]
  - NEUROLOGICAL SYMPTOM [None]
  - URINE ANALYSIS ABNORMAL [None]
